FAERS Safety Report 4432210-1 (Version None)
Quarter: 2004Q3

REPORT INFORMATION
  Report Type: 
  Country: None (occurrence: None)
  Receive Date: 20040820
  Receipt Date: 20040804
  Transmission Date: 20050211
  Serious: Yes (Other)
  Sender: FDA-Public Use
  Company Number: DSA_24781_2004

PATIENT
  Age: 51 Year
  Sex: Male

DRUGS (2)
  1. TEVETEN [Suspect]
     Indication: HYPERTENSION
     Dosage: 300 MG Q DAY PO
     Route: 048
     Dates: start: 20030701, end: 20040213
  2. PAXIL [Concomitant]

REACTIONS (1)
  - MYOCARDIAL INFARCTION [None]
